FAERS Safety Report 9620660 (Version 2)
Quarter: 2013Q4

REPORT INFORMATION
  Report Type: Spontaneous
  Country: GB (occurrence: GB)
  Receive Date: 20131015
  Receipt Date: 20131031
  Transmission Date: 20140711
  Serious: Yes (Other)
  Sender: FDA-Public Use
  Company Number: GB-ROCHE-1287045

PATIENT
  Age: 39 Year
  Sex: Female

DRUGS (4)
  1. HERCEPTIN [Suspect]
     Indication: BREAST CANCER
     Route: 065
  2. CAPECITABINE [Suspect]
     Indication: BREAST CANCER
     Route: 065
  3. TAMOXIFEN [Concomitant]
  4. TAXOL [Concomitant]

REACTIONS (1)
  - Metastases to spine [Unknown]
